FAERS Safety Report 13011905 (Version 1)
Quarter: 2016Q4

REPORT INFORMATION
  Report Type: Spontaneous
  Country: FR (occurrence: FR)
  Receive Date: 20161209
  Receipt Date: 20161209
  Transmission Date: 20170207
  Serious: Yes (Hospitalization)
  Sender: FDA-Public Use
  Company Number: FR-009507513-1611FRA014230

PATIENT
  Age: 78 Year
  Sex: Female

DRUGS (12)
  1. LAROXYL [Suspect]
     Active Substance: AMITRIPTYLINE
     Dosage: 1 DF, QD
     Route: 048
     Dates: end: 20161108
  2. PARIET [Concomitant]
     Active Substance: RABEPRAZOLE SODIUM
  3. NOVORAPID [Concomitant]
     Active Substance: INSULIN ASPART
  4. LEVEMIR [Concomitant]
     Active Substance: INSULIN DETEMIR
     Dosage: PREFILLED SYRINGE, 100 U/ML
  5. DIGOXINE NATIVELLE [Suspect]
     Active Substance: DIGOXIN
     Dosage: 0.25 MG, QD
     Route: 048
     Dates: start: 20121112, end: 20161108
  6. CANDESARTAN CILEXETIL. [Concomitant]
     Active Substance: CANDESARTAN CILEXETIL
  7. PREVISCAN [Concomitant]
     Active Substance: FLUINDIONE
  8. FUROSEMIDE. [Concomitant]
     Active Substance: FUROSEMIDE
  9. METFORMIN [Concomitant]
     Active Substance: METFORMIN HYDROCHLORIDE
  10. INEGY [Suspect]
     Active Substance: EZETIMIBE\SIMVASTATIN
     Dosage: 1 DF, QD, 10 MG/20 MG
     Route: 048
     Dates: end: 20161108
  11. NEBILOX [Concomitant]
     Active Substance: NEBIVOLOL HYDROCHLORIDE
     Dosage: DOUBLE SCORED TABLET
  12. TANGANIL [Concomitant]
     Active Substance: ACETYLLEUCINE

REACTIONS (2)
  - Memory impairment [Recovering/Resolving]
  - Abnormal behaviour [Recovering/Resolving]

NARRATIVE: CASE EVENT DATE: 201608
